FAERS Safety Report 18587235 (Version 1)
Quarter: 2020Q4

REPORT INFORMATION
  Report Type: Spontaneous
  Country: US (occurrence: US)
  Receive Date: 20201207
  Receipt Date: 20201207
  Transmission Date: 20210114
  Serious: No
  Sender: FDA-Public Use
  Company Number: US-PFIZER INC-2020409920

PATIENT
  Age: 55 Year
  Sex: Male

DRUGS (1)
  1. RETACRIT [Suspect]
     Active Substance: EPOETIN ALFA-EPBX
     Dosage: 40000 IU, EVERY 3 WEEKS (EVERY 3 WEEKS AND REFILLS ARE LISTED AS 18)

REACTIONS (2)
  - Malaise [Unknown]
  - Off label use [Unknown]
